FAERS Safety Report 21730815 (Version 1)
Quarter: 2022Q4

REPORT INFORMATION
  Report Type: Spontaneous
  Country: GB (occurrence: None)
  Receive Date: 20221215
  Receipt Date: 20221215
  Transmission Date: 20230113
  Serious: Yes (Hospitalization)
  Sender: FDA-Public Use
  Company Number: GB-Merck Healthcare KGaA-9371449

PATIENT
  Sex: Female

DRUGS (1)
  1. REBIF [Suspect]
     Active Substance: INTERFERON BETA-1A
     Indication: Multiple sclerosis
     Dosage: 0.5ML (12MILLION UNITS) SOLUTION FOR INJECTION PRE-FILLED SYRINGE, 12 PREFILLED DISPOSABLE INJECTION
     Route: 058

REACTIONS (2)
  - Hospitalisation [Unknown]
  - Infection [Unknown]
